FAERS Safety Report 6600422-4 (Version None)
Quarter: 2010Q1

REPORT INFORMATION
  Report Type: 
  Country: None (occurrence: None)
  Receive Date: 20100224
  Receipt Date: 20100216
  Transmission Date: 20100710
  Serious: Yes (Other)
  Sender: FDA-Public Use
  Company Number: JP-ASTRAZENECA-2010SE07272

PATIENT
  Age: 76 Year
  Sex: Male

DRUGS (1)
  1. DIPRIVAN [Suspect]
     Indication: INDUCTION OF ANAESTHESIA
     Route: 042
     Dates: start: 20100212, end: 20100212

REACTIONS (2)
  - EYE ROLLING [None]
  - MUSCULOSKELETAL STIFFNESS [None]
